FAERS Safety Report 9754044 (Version 1)
Quarter: 2013Q4

REPORT INFORMATION
  Report Type: Spontaneous
  Country: US (occurrence: US)
  Receive Date: 20131213
  Receipt Date: 20131213
  Transmission Date: 20140711
  Serious: No
  Sender: FDA-Public Use
  Company Number: US-GLAXOSMITHKLINE-A1012199A

PATIENT
  Age: 52 Year
  Sex: Female

DRUGS (5)
  1. NICORETTE NICOTINE POLACRILEX CHERRY LOZENGE, 4MG [Suspect]
     Indication: EX-TOBACCO USER
     Dates: start: 20130214
  2. NICODERM CQ CLEAR 21MG [Suspect]
     Indication: EX-TOBACCO USER
     Dates: start: 20130213
  3. NICODERM CQ 14MG [Suspect]
     Indication: EX-TOBACCO USER
  4. NICODERM CQ 7MG [Suspect]
     Indication: EX-TOBACCO USER
  5. UNSPECIFIED MEDICATIONS [Concomitant]

REACTIONS (6)
  - Feeling jittery [Not Recovered/Not Resolved]
  - Drug administration error [Unknown]
  - Drug ineffective [Unknown]
  - Heart rate increased [Recovered/Resolved]
  - Palpitations [Recovered/Resolved]
  - Logorrhoea [Not Recovered/Not Resolved]
